FAERS Safety Report 4927897-0 (Version None)
Quarter: 2006Q1

REPORT INFORMATION
  Report Type: 
  Country: None (occurrence: None)
  Receive Date: 20060228
  Receipt Date: 20060214
  Transmission Date: 20060701
  Serious: Yes (Other)
  Sender: FDA-Public Use
  Company Number: GB-SOLVAY-00206000665

PATIENT
  Age: 42 Year
  Sex: Female

DRUGS (3)
  1. AMLODIPINE [Concomitant]
     Indication: ILL-DEFINED DISORDER
     Dosage: DAILY DOSE:  UNKNOWN
     Route: 048
  2. COVERSYL [Suspect]
     Indication: HYPERTENSION
     Dosage: DAILY DOSE: 2 MILLIGRAM(S)
     Route: 048
     Dates: start: 20050301, end: 20050901
  3. COVERSYL [Suspect]
     Dosage: DAILY DOSE: 2 MILLIGRAM(S)
     Route: 048
     Dates: start: 20050101, end: 20060201

REACTIONS (1)
  - APLASIA PURE RED CELL [None]
